FAERS Safety Report 4586630-5 (Version None)
Quarter: 2005Q1

REPORT INFORMATION
  Report Type: 
  Country: None (occurrence: None)
  Receive Date: 20050218
  Receipt Date: 20040805
  Transmission Date: 20050727
  Serious: No
  Sender: FDA-Public Use
  Company Number: US-BRISTOL-MYERS SQUIBB COMPANY-12662094

PATIENT
  Sex: Female

DRUGS (6)
  1. TAXOL [Suspect]
     Indication: BREAST CANCER
     Dosage: IN 510 ML OF NORMAL SALINE ADDITIONAL EXPIRATION DATE: 12/06
     Dates: start: 20040729, end: 20040729
  2. CARBOPLATIN [Concomitant]
     Dates: start: 20040729, end: 20040729
  3. DECADRON [Concomitant]
     Indication: PREMEDICATION
     Dates: start: 20040729, end: 20040729
  4. KYTRIL [Concomitant]
     Indication: PREMEDICATION
     Dates: start: 20040729, end: 20040729
  5. BENADRYL [Concomitant]
     Indication: PREMEDICATION
     Dates: start: 20040729, end: 20040729
  6. ZANTAC [Concomitant]
     Indication: PREMEDICATION
     Dates: start: 20040729, end: 20040729

REACTIONS (1)
  - HEADACHE [None]
